FAERS Safety Report 9343160 (Version 4)
Quarter: 2013Q4

REPORT INFORMATION
  Report Type: Spontaneous
  Country: JP (occurrence: JP)
  Receive Date: 20130611
  Receipt Date: 20131112
  Transmission Date: 20140711
  Serious: Yes (Other)
  Sender: FDA-Public Use
  Company Number: CHNY2013JP001296

PATIENT
  Age: 71 Year
  Sex: Female

DRUGS (5)
  1. PURSENNID [Suspect]
     Indication: CONSTIPATION
     Dosage: 2 DF, QD
     Route: 048
     Dates: start: 201209
  2. PURSENNID [Suspect]
     Dosage: 3 TO 4 DF, QD
     Route: 048
     Dates: start: 20130604
  3. COSPANON [Concomitant]
     Indication: GASTROINTESTINAL PAIN
     Dosage: UNK, UNK
     Route: 048
  4. COLIOPAN [Concomitant]
     Dosage: UNK, UNK
     Route: 048
  5. SG [Concomitant]
     Indication: PAIN
     Dosage: UNK, UNK
     Route: 048
     Dates: start: 20130606

REACTIONS (13)
  - Pain [Unknown]
  - Abdominal pain [Unknown]
  - Intestinal obstruction [Recovering/Resolving]
  - Abdominal tenderness [Unknown]
  - Vomiting [Unknown]
  - Decreased appetite [Unknown]
  - Skin exfoliation [Unknown]
  - Decubitus ulcer [Unknown]
  - Constipation [Unknown]
  - Nausea [Unknown]
  - Diarrhoea [Unknown]
  - Therapeutic response decreased [Unknown]
  - Incorrect drug administration duration [Unknown]
